FAERS Safety Report 9394971 (Version 1)
Quarter: 2013Q3

REPORT INFORMATION
  Report Type: Spontaneous
  Country: DE (occurrence: None)
  Receive Date: 20130705
  Receipt Date: 20130705
  Transmission Date: 20140515
  Serious: Yes (Other)
  Sender: FDA-Public Use
  Company Number: 2013P1010091

PATIENT
  Sex: 0
  Weight: 1.86 kg

DRUGS (10)
  1. CITALOPRAM [Suspect]
     Indication: PSYCHOTIC DISORDER
  2. QUETIAPINE [Suspect]
     Indication: PSYCHOTIC DISORDER
  3. DOXEPIN [Suspect]
     Indication: PSYCHOTIC DISORDER
  4. NICOTINE [Suspect]
  5. FORMOTEROL [Concomitant]
  6. REPROTEROL HYDROCHLORIDE [Concomitant]
  7. CROMOGLICATE LISETIL [Concomitant]
  8. BECLOMETHASONE [Concomitant]
  9. ETHINYLESTRADIOL AND LEVONORGESTREL [Concomitant]
  10. RESTEX (LEVODOPA AND BENSERAXID) [Concomitant]

REACTIONS (3)
  - Maternal drugs affecting foetus [None]
  - Premature baby [None]
  - Neonatal respiratory distress syndrome [None]
